FAERS Safety Report 19429898 (Version 2)
Quarter: 2021Q3

REPORT INFORMATION
  Report Type: Spontaneous
  Country: DE (occurrence: DE)
  Receive Date: 20210617
  Receipt Date: 20210712
  Transmission Date: 20211014
  Serious: Yes (Other)
  Sender: FDA-Public Use
  Company Number: DE-MYLANLABS-2021M1035060

PATIENT
  Age: 27 Year
  Sex: Female

DRUGS (22)
  1. METHOTREXATE. [Suspect]
     Active Substance: METHOTREXATE
     Dosage: UNK (5 G/M2 BSA OVER 30 MIN AND 4.5 G/M2 BSA OVER 23.5 HR VIA INFUSION, DAY 1, CYCLE A AND B)
     Route: 042
  2. PREDNISOLONE. [Suspect]
     Active Substance: PREDNISOLONE
     Dosage: CYCLE C; DAY 3, 4, 5, 6, CYCLE A, B; DAY 1, 2, 3, 4
     Route: 050
  3. VINDESINE [Suspect]
     Active Substance: VINDESINE
     Indication: CENTRAL NERVOUS SYSTEM LYMPHOMA
     Dosage: 5 MILLIGRAM, CYCLE (5 MG, DAY 1, CYCLE C)
     Route: 042
  4. HOLOXAN [Suspect]
     Active Substance: IFOSFAMIDE
     Indication: CENTRAL NERVOUS SYSTEM LYMPHOMA
     Dosage: BAS, CYCLE A (DAY 2, 3, 4, 5), OVER 1 HOUR PER INFUSION
     Route: 042
  5. DEXAMETHASONE. [Suspect]
     Active Substance: DEXAMETHASONE
     Dosage: 10 MILLIGRAM/SQ. METER, CYCLE (10 MG/M2 BSA, DAY 1,2,3,4,5, CYCLE A AND B)
     Route: 048
  6. METHOTREXATE. [Suspect]
     Active Substance: METHOTREXATE
     Dosage: 3 MILLIGRAM, CYCLE (INTRAVENTRICULAR, 3 MG, DAY 3,4,5,6, CYCLE C)
     Route: 020
  7. DEXAMETHASONE. [Suspect]
     Active Substance: DEXAMETHASONE
     Indication: CENTRAL NERVOUS SYSTEM LYMPHOMA
     Dosage: 20 MILLIGRAM/SQ. METER, CYCLE (20 MG/M2 BSA, DAY 1,2,3,4,5, CYCLE C)
     Route: 048
  8. CYTARABINE. [Suspect]
     Active Substance: CYTARABINE
     Dosage: 3000 MILLIGRAM/SQ. METER, CYCLE (3 G/M2 BSA, OVER 3 HR VIA INFUSION, DAY 1,2, CYCLE C)
     Route: 042
  9. PREDNISOLONE. [Suspect]
     Active Substance: PREDNISOLONE
     Dosage: 2.5 MILLIGRAM, CYCLE (INTRAVENTRICULAR, 2.5 MG, DAY 3,4,5,6, CYCLE C)
     Route: 020
  10. CYTARABINE. [Suspect]
     Active Substance: CYTARABINE
     Indication: CENTRAL NERVOUS SYSTEM LYMPHOMA
     Dosage: 30 MILLIGRAM, CYCLE (INTRAVENTRICULAR 30 MG, DAY 5, CYCLE A AND B)
     Route: 020
  11. PREDNISOLONE. [Suspect]
     Active Substance: PREDNISOLONE
     Indication: CENTRAL NERVOUS SYSTEM LYMPHOMA
     Dosage: 2.5 MILLIGRAM, CYCLE (INTRAVENTRICULAR, 2.5 MG, DAY 1,2,3,4, CYCLE A AND B)
     Route: 020
  12. IFOSFAMIDE. [Suspect]
     Active Substance: IFOSFAMIDE
     Indication: CENTRAL NERVOUS SYSTEM LYMPHOMA
     Dosage: 2 MILLIGRAM, CYCLE (2 MG, DAY 1,2,3,4,5 (800 MG/M^2 BSA) (OVER 1 HR VIA INFUSION), CYCLE A  )
     Route: 042
  13. ENDOXAN                            /00021101/ [Suspect]
     Active Substance: CYCLOPHOSPHAMIDE
     Indication: CENTRAL NERVOUS SYSTEM LYMPHOMA
     Dosage: 200 MILLIGRAM/SQ. METER, CYCLE (BSA, CYCLE B (DAY 2, 3, 4, 5)
     Route: 042
  14. MESNA. [Concomitant]
     Active Substance: MESNA
     Indication: PROPHYLAXIS
     Dosage: UNK
  15. CYTARABINE. [Suspect]
     Active Substance: CYTARABINE
     Dosage: BAS, C, DAY 1 AND 2
     Route: 042
  16. CYCLOPHOSPHAMIDE. [Suspect]
     Active Substance: CYCLOPHOSPHAMIDE
     Indication: CENTRAL NERVOUS SYSTEM LEUKAEMIA
     Dosage: 200 MILLIGRAM/SQ. METER, CYCLE(200 MG/M2 BSA OVER 1 HR VIA INFUSION, DAY 2, 3, 4, 5, CYCLE B)
     Route: 042
  17. VINCRISTINE SULFATE. [Suspect]
     Active Substance: VINCRISTINE SULFATE
     Indication: CENTRAL NERVOUS SYSTEM LYMPHOMA
     Dosage: UNK (DAY 1, CYCLE A)
     Route: 042
  18. VINCRISTINE SULFATE. [Suspect]
     Active Substance: VINCRISTINE SULFATE
     Dosage: 2 MILLIGRAM, CYCLE (2 MG, DAY 1, CYCLE B)
     Route: 042
  19. CYTARABINE. [Suspect]
     Active Substance: CYTARABINE
     Dosage: 30 MILLIGRAM, CYCLE (INTRAVENTRICULAR 30 MG, DAY 7, CYCLE C)
     Route: 020
  20. METHOTREXATE. [Suspect]
     Active Substance: METHOTREXATE
     Indication: CENTRAL NERVOUS SYSTEM LYMPHOMA
     Dosage: 3 MILLIGRAM, CYCLE (INTRAVENTRICULAR, 3 MG, DAY 1,2,3,4, CYCLE A AND B)
     Route: 020
  21. CYTARABINE. [Suspect]
     Active Substance: CYTARABINE
     Dosage: 30 MILLIGRAM/SQ. METER CYCLE C, DAY 7, CYCLE A AND B, DAY 5
     Route: 050
  22. METHOTREXATE. [Suspect]
     Active Substance: METHOTREXATE
     Dosage: CYCLE A AND B, DAY 1, 2, 3, 4, CYCLE C, DAY 3, 4, 5, 6
     Route: 050

REACTIONS (6)
  - Thrombophlebitis [Unknown]
  - Infection [Unknown]
  - Alopecia areata [Unknown]
  - Meningitis bacterial [Unknown]
  - Leukopenia [Unknown]
  - Shunt infection [Unknown]
